FAERS Safety Report 12315940 (Version 3)
Quarter: 2016Q3

REPORT INFORMATION
  Report Type: Spontaneous
  Country: JP (occurrence: JP)
  Receive Date: 20160428
  Receipt Date: 20160809
  Transmission Date: 20161109
  Serious: Yes (Death, Other)
  Sender: FDA-Public Use
  Company Number: JP-GILEAD-2016-0209352

PATIENT
  Age: 79 Year
  Sex: Female
  Weight: 43.5 kg

DRUGS (5)
  1. COPEGUS [Concomitant]
     Active Substance: RIBAVIRIN
     Indication: CHRONIC HEPATITIS C
     Dosage: 200 MG, TID
     Route: 048
     Dates: start: 20160112
  2. SILECE [Concomitant]
     Active Substance: FLUNITRAZEPAM
     Indication: DEPRESSION
     Dosage: 2 MG, QD
     Route: 048
     Dates: start: 1998, end: 201501
  3. SOVALDI [Suspect]
     Active Substance: SOFOSBUVIR
     Indication: CHRONIC HEPATITIS C
     Dosage: 400 MG, QD
     Route: 048
     Dates: start: 20160112
  4. SILECE [Concomitant]
     Active Substance: FLUNITRAZEPAM
     Dosage: 1 MG, QD
     Route: 048
     Dates: start: 201501
  5. EURODIN                            /00401202/ [Concomitant]
     Active Substance: DIHYDROERGOCRISTINE MESYLATE
     Indication: DEPRESSION
     Dosage: 1 MG, TID
     Route: 048
     Dates: start: 1998

REACTIONS (8)
  - Fatigue [Unknown]
  - Disorientation [Not Recovered/Not Resolved]
  - Death [Fatal]
  - White blood cell count increased [Unknown]
  - Headache [Not Recovered/Not Resolved]
  - Hyperthermia [Not Recovered/Not Resolved]
  - Hypertension [Unknown]
  - Anaemia [Unknown]

NARRATIVE: CASE EVENT DATE: 20160308
